FAERS Safety Report 16473688 (Version 2)
Quarter: 2019Q3

REPORT INFORMATION
  Report Type: Report from Study
  Country: US (occurrence: US)
  Receive Date: 20190625
  Receipt Date: 20190804
  Transmission Date: 20191004
  Serious: Yes (Hospitalization)
  Sender: FDA-Public Use
  Company Number: US-BAYER-2019-097454

PATIENT
  Age: 64 Year
  Sex: Male

DRUGS (2)
  1. NEXAVAR [Suspect]
     Active Substance: SORAFENIB
     Indication: HEPATOCELLULAR CARCINOMA
     Dosage: 200 MG DAILY (MONDAYS, WEDNESDAYS AND FRIDAYS ONLY)
     Route: 048
     Dates: start: 20190711
  2. NEXAVAR [Suspect]
     Active Substance: SORAFENIB
     Indication: HEPATOCELLULAR CARCINOMA
     Dosage: 400 MG, BID
     Route: 048
     Dates: start: 20190513, end: 2019

REACTIONS (8)
  - Skin exfoliation [Not Recovered/Not Resolved]
  - Confusional state [Unknown]
  - Contusion [Not Recovered/Not Resolved]
  - Product dose omission [Unknown]
  - Ammonia increased [Unknown]
  - Nausea [Unknown]
  - Vomiting [Unknown]
  - Off label use [Not Recovered/Not Resolved]

NARRATIVE: CASE EVENT DATE: 2019
